FAERS Safety Report 4995466-2 (Version None)
Quarter: 2006Q1

REPORT INFORMATION
  Report Type: 
  Country: None (occurrence: None)
  Receive Date: 20060315
  Receipt Date: 20060105
  Transmission Date: 20060701
  Serious: Yes (Other)
  Sender: FDA-Public Use
  Company Number: 431223

PATIENT
  Sex: Female

DRUGS (2)
  1. BONIVA [Suspect]
     Dates: start: 20051231
  2. PROTONIX [Concomitant]

REACTIONS (5)
  - BACK PAIN [None]
  - CONSTIPATION [None]
  - GASTROINTESTINAL PAIN [None]
  - INFLUENZA LIKE ILLNESS [None]
  - THROAT IRRITATION [None]
